FAERS Safety Report 8934873 (Version 1)
Quarter: 2012Q4

REPORT INFORMATION
  Report Type: 
  Country: AU (occurrence: AU)
  Receive Date: 20121129
  Receipt Date: 20121129
  Transmission Date: 20130627
  Serious: Yes (Life-Threatening, Hospitalization, Other)
  Sender: FDA-Public Use
  Company Number: AU-ROXANE LABORATORIES, INC.-2012-RO-02461RO

PATIENT
  Age: 69 Year
  Sex: Female
  Weight: 64 kg

DRUGS (9)
  1. CYCLOPHOSPHAMIDE TABLETS USP [Suspect]
     Indication: MULTIPLE MYELOMA
     Route: 048
     Dates: start: 20120212
  2. DEXAMETHASONE [Suspect]
     Indication: MULTIPLE MYELOMA
     Route: 048
     Dates: start: 20120221
  3. SERTRALINE [Suspect]
  4. OMEPRAZOLE [Suspect]
  5. THALIDOMIDE [Suspect]
     Indication: MULTIPLE MYELOMA
     Dosage: 100 mg
     Route: 048
     Dates: start: 20120221
  6. OLMESARTAN [Suspect]
  7. ASPIRIN [Suspect]
  8. TEMAZEPAM [Suspect]
  9. FUROSEMIDE [Suspect]
     Dosage: 40 mg
     Route: 042

REACTIONS (6)
  - Inappropriate antidiuretic hormone secretion [Recovered/Resolved]
  - Hyponatraemia [Recovered/Resolved]
  - Myopathy [Unknown]
  - Abnormal loss of weight [Unknown]
  - Lethargy [Unknown]
  - Fatigue [Unknown]
